FAERS Safety Report 6069118-4 (Version None)
Quarter: 2009Q1

REPORT INFORMATION
  Report Type: 
  Country: None (occurrence: None)
  Receive Date: 20090206
  Receipt Date: 20090127
  Transmission Date: 20090719
  Serious: Yes (Other)
  Sender: FDA-Public Use
  Company Number: FR-BAXTER-2009BH001840

PATIENT
  Sex: Male

DRUGS (2)
  1. RECOMBINATE [Suspect]
     Indication: FACTOR VIII DEFICIENCY
     Route: 042
  2. ANTIHEMOPHILIC FACTOR (HUMAN) [Suspect]
     Indication: FACTOR VIII DEFICIENCY
     Route: 042

REACTIONS (2)
  - HEPATITIS C [None]
  - HIV INFECTION [None]
